FAERS Safety Report 5004911-8 (Version None)
Quarter: 2006Q1

REPORT INFORMATION
  Report Type: 
  Country: None (occurrence: None)
  Receive Date: 20060321
  Receipt Date: 20060213
  Transmission Date: 20060701
  Serious: No
  Sender: FDA-Public Use
  Company Number: 2006US000345

PATIENT
  Sex: Female

DRUGS (1)
  1. VESICARE [Suspect]
     Indication: HYPERTONIC BLADDER
     Dosage: 5 MG, UNK, ORAL
     Dates: start: 20051222, end: 20051228

REACTIONS (2)
  - DRUG INEFFECTIVE [None]
  - VISION BLURRED [None]
